FAERS Safety Report 10466270 (Version 4)
Quarter: 2014Q4

REPORT INFORMATION
  Report Type: Spontaneous
  Country: US (occurrence: US)
  Receive Date: 20140922
  Receipt Date: 20141020
  Transmission Date: 20150528
  Serious: Yes (Hospitalization)
  Sender: FDA-Public Use
  Company Number: US-ABBVIE-14K-163-1282766-00

PATIENT
  Age: 61 Year
  Sex: Female

DRUGS (1)
  1. HUMIRA [Suspect]
     Active Substance: ADALIMUMAB
     Indication: PSORIASIS
     Route: 058
     Dates: start: 201312, end: 201408

REACTIONS (9)
  - Pyrexia [Recovered/Resolved]
  - Palpitations [Recovered/Resolved]
  - Escherichia sepsis [Recovered/Resolved]
  - White blood cell count increased [Recovered/Resolved]
  - Immunodeficiency [Unknown]
  - Renal failure [Recovering/Resolving]
  - Blood pressure decreased [Recovered/Resolved]
  - Cough [Recovered/Resolved]
  - Influenza like illness [Recovered/Resolved]

NARRATIVE: CASE EVENT DATE: 201408
